FAERS Safety Report 6548356-8 (Version None)
Quarter: 2010Q1

REPORT INFORMATION
  Report Type: 
  Country: None (occurrence: None)
  Receive Date: 20100124
  Receipt Date: 20090529
  Transmission Date: 20100710
  Serious: No
  Sender: FDA-Public Use
  Company Number: US-ALLERGAN-0907561US

PATIENT
  Sex: Female

DRUGS (2)
  1. RESTASIS [Suspect]
     Indication: DRY EYE
     Dosage: UNK, UNK
     Route: 047
     Dates: start: 20090501
  2. COMBIGAN [Concomitant]

REACTIONS (5)
  - DRY SKIN [None]
  - EYE IRRITATION [None]
  - EYE PRURITUS [None]
  - SKIN IRRITATION [None]
  - STICKY SKIN [None]
